FAERS Safety Report 14782228 (Version 1)
Quarter: 2018Q2

REPORT INFORMATION
  Report Type: Spontaneous
  Country: US (occurrence: US)
  Receive Date: 20180420
  Receipt Date: 20180420
  Transmission Date: 20180711
  Serious: No
  Sender: FDA-Public Use
  Company Number: US-CIPLA LTD.-2018US06191

PATIENT

DRUGS (1)
  1. MEPROBAMATE. [Suspect]
     Active Substance: MEPROBAMATE
     Indication: INSOMNIA
     Dosage: 200 MG, UNK
     Route: 048

REACTIONS (1)
  - Off label use [Unknown]
